FAERS Safety Report 13193911 (Version 2)
Quarter: 2020Q1

REPORT INFORMATION
  Report Type: Report from Study
  Country: CO (occurrence: CO)
  Receive Date: 20170207
  Receipt Date: 20200128
  Transmission Date: 20200409
  Serious: Yes (Other)
  Sender: FDA-Public Use
  Company Number: CO-JNJFOC-20170205102

PATIENT
  Age: 56 Year
  Sex: Female
  Weight: 79 kg

DRUGS (1)
  1. STELARA [Suspect]
     Active Substance: USTEKINUMAB
     Indication: PSORIASIS
     Route: 058
     Dates: start: 20160302

REACTIONS (2)
  - Pyrexia [Unknown]
  - Groin abscess [Recovered/Resolved]

NARRATIVE: CASE EVENT DATE: 20170131
